FAERS Safety Report 8150300-7 (Version None)
Quarter: 2012Q1

REPORT INFORMATION
  Report Type: 
  Country: None (occurrence: None)
  Receive Date: 20120220
  Receipt Date: 20120207
  Transmission Date: 20120608
  Serious: Yes (Hospitalization, Other)
  Sender: FDA-Public Use
  Company Number: CA-ELI_LILLY_AND_COMPANY-CA201202002256

PATIENT
  Age: 68 Year
  Sex: Female

DRUGS (14)
  1. DOCUSATE SODIUM [Concomitant]
  2. VITAMIN B-12 [Concomitant]
  3. TYLENOL (CAPLET) [Concomitant]
     Dosage: UNK, PRN
  4. APO-FOLIC [Concomitant]
  5. NOVO-GESIC [Concomitant]
  6. KEPPRA [Concomitant]
  7. PRO-AAS [Concomitant]
  8. CALCIUM [Concomitant]
  9. DETROL [Concomitant]
  10. METHOTREXATE [Concomitant]
  11. FORTEO [Suspect]
     Indication: OSTEOPOROSIS
     Dosage: 20 UG, QD
     Route: 058
     Dates: start: 20120123
  12. RANITIDINE [Concomitant]
  13. PLAQUENIL [Concomitant]
  14. ATORVASTATIN [Concomitant]

REACTIONS (4)
  - MYOCARDIAL INFARCTION [None]
  - DYSKINESIA [None]
  - MUSCULOSKELETAL STIFFNESS [None]
  - COGNITIVE DISORDER [None]
